FAERS Safety Report 16928869 (Version 2)
Quarter: 2019Q4

REPORT INFORMATION
  Report Type: Spontaneous
  Country: US (occurrence: US)
  Receive Date: 20191017
  Receipt Date: 20191127
  Transmission Date: 20200122
  Serious: Yes (Life-Threatening, Other)
  Sender: FDA-Public Use
  Company Number: US-EMD SERONO-7007819

PATIENT
  Sex: Female

DRUGS (1)
  1. REBIF [Suspect]
     Active Substance: INTERFERON BETA-1A
     Indication: RELAPSING-REMITTING MULTIPLE SCLEROSIS
     Route: 058
     Dates: start: 20000210, end: 2019

REACTIONS (5)
  - Fall [Unknown]
  - Head injury [Recovered/Resolved]
  - Thrombosis [Unknown]
  - Motor dysfunction [Unknown]
  - Near death experience [Recovering/Resolving]

NARRATIVE: CASE EVENT DATE: 2007
